FAERS Safety Report 21923573 (Version 4)
Quarter: 2023Q2

REPORT INFORMATION
  Report Type: Other
  Country: CA (occurrence: CA)
  Receive Date: 20230130
  Receipt Date: 20230428
  Transmission Date: 20230721
  Serious: Yes (Death, Other)
  Sender: FDA-Public Use
  Company Number: CA-CELLTRION INC.-2023CA001464

PATIENT

DRUGS (104)
  1. ADALIMUMAB [Suspect]
     Active Substance: ADALIMUMAB
     Indication: Foetal exposure during pregnancy
     Dosage: UNK
     Route: 064
  2. ADALIMUMAB [Suspect]
     Active Substance: ADALIMUMAB
     Dosage: UNK
     Route: 064
  3. RITUXIMAB [Suspect]
     Active Substance: RITUXIMAB
     Indication: Foetal exposure during pregnancy
     Route: 064
  4. ACETAMINOPHEN [Suspect]
     Active Substance: ACETAMINOPHEN
     Indication: Foetal exposure during pregnancy
     Route: 064
  5. ALENDRONATE SODIUM [Suspect]
     Active Substance: ALENDRONATE SODIUM
     Indication: Foetal exposure during pregnancy
     Dosage: UNK
     Route: 064
  6. ALENDRONATE SODIUM [Suspect]
     Active Substance: ALENDRONATE SODIUM
     Dosage: UNK
     Route: 064
  7. ALENDRONIC ACID [Suspect]
     Active Substance: ALENDRONIC ACID
     Indication: Foetal exposure during pregnancy
     Dosage: UNK
     Route: 064
  8. ALENDRONIC ACID [Suspect]
     Active Substance: ALENDRONIC ACID
     Dosage: UNK
     Route: 064
  9. ALENDRONIC ACID [Suspect]
     Active Substance: ALENDRONIC ACID
     Dosage: UNK
     Route: 064
  10. APREMILAST [Suspect]
     Active Substance: APREMILAST
     Indication: Foetal exposure during pregnancy
     Route: 064
  11. CERTOLIZUMAB PEGOL [Suspect]
     Active Substance: CERTOLIZUMAB PEGOL
     Indication: Foetal exposure during pregnancy
     Route: 064
  12. CETIRIZINE [Suspect]
     Active Substance: CETIRIZINE HYDROCHLORIDE
     Indication: Foetal exposure during pregnancy
     Route: 064
  13. CETIRIZINE [Suspect]
     Active Substance: CETIRIZINE HYDROCHLORIDE
     Dosage: UNK
     Route: 064
  14. CORTISONE ACETATE [Suspect]
     Active Substance: CORTISONE ACETATE
     Indication: Foetal exposure during pregnancy
     Route: 064
  15. DESOXIMETASONE [Suspect]
     Active Substance: DESOXIMETASONE
     Indication: Foetal exposure during pregnancy
     Route: 064
  16. DESOXIMETASONE [Suspect]
     Active Substance: DESOXIMETASONE
     Indication: Foetal exposure during pregnancy
     Route: 064
  17. DICLOFENAC [Suspect]
     Active Substance: DICLOFENAC
     Indication: Foetal exposure during pregnancy
     Route: 064
  18. DIPHENHYDRAMINE [Suspect]
     Active Substance: DIPHENHYDRAMINE
     Indication: Foetal exposure during pregnancy
     Route: 064
  19. ERELZI [Suspect]
     Active Substance: ETANERCEPT-SZZS
     Indication: Foetal exposure during pregnancy
     Route: 064
  20. FOLIC ACID [Suspect]
     Active Substance: FOLIC ACID
     Indication: Foetal exposure during pregnancy
     Route: 064
  21. FOLIC ACID [Suspect]
     Active Substance: FOLIC ACID
     Route: 064
  22. GOLIMUMAB [Suspect]
     Active Substance: GOLIMUMAB
     Indication: Foetal exposure during pregnancy
     Route: 064
  23. GOLIMUMAB [Suspect]
     Active Substance: GOLIMUMAB
     Dosage: UNK
     Route: 064
  24. HYDROCORTISONE [Suspect]
     Active Substance: HYDROCORTISONE
     Indication: Foetal exposure during pregnancy
     Route: 064
  25. HYDROXYCHLOROQUINE [Suspect]
     Active Substance: HYDROXYCHLOROQUINE
     Indication: Foetal exposure during pregnancy
     Dosage: UNK
     Route: 064
  26. HYDROXYCHLOROQUINE [Suspect]
     Active Substance: HYDROXYCHLOROQUINE
     Dosage: 400 MILLIGRAM
     Route: 064
  27. HYDROXYCHLOROQUINE [Suspect]
     Active Substance: HYDROXYCHLOROQUINE
     Dosage: UNK
     Route: 064
  28. INFLIXIMAB [Suspect]
     Active Substance: INFLIXIMAB
     Indication: Foetal exposure during pregnancy
     Route: 064
  29. INFLIXIMAB [Suspect]
     Active Substance: INFLIXIMAB
     Indication: Foetal exposure during pregnancy
     Route: 064
  30. LEFLUNOMIDE [Suspect]
     Active Substance: LEFLUNOMIDE
     Indication: Foetal exposure during pregnancy
     Route: 064
  31. LEFLUNOMIDE [Suspect]
     Active Substance: LEFLUNOMIDE
     Indication: Foetal exposure during pregnancy
     Route: 064
  32. METHOTREXATE [Suspect]
     Active Substance: METHOTREXATE
     Indication: Foetal exposure during pregnancy
     Route: 064
  33. METHYLPREDNISOLONE SODIUM SUCCINATE [Suspect]
     Active Substance: METHYLPREDNISOLONE SODIUM SUCCINATE
     Indication: Foetal exposure during pregnancy
     Route: 064
  34. ORENCIA [Suspect]
     Active Substance: ABATACEPT
     Indication: Foetal exposure during pregnancy
     Route: 064
  35. PHTHALYLSULFATHIAZOLE [Suspect]
     Active Substance: PHTHALYLSULFATHIAZOLE
     Indication: Foetal exposure during pregnancy
     Route: 064
  36. PREDNISONE [Suspect]
     Active Substance: PREDNISONE
     Indication: Foetal exposure during pregnancy
     Route: 064
  37. PREDNISONE [Suspect]
     Active Substance: PREDNISONE
     Dosage: UNK
     Route: 064
  38. PREDNISONE [Suspect]
     Active Substance: PREDNISONE
     Indication: Foetal exposure during pregnancy
     Route: 064
  39. PSEUDOEPHEDRINE HYDROCHLORIDE [Suspect]
     Active Substance: PSEUDOEPHEDRINE HYDROCHLORIDE
     Indication: Foetal exposure during pregnancy
     Route: 064
  40. PSEUDOEPHEDRINE HYDROCHLORIDE [Suspect]
     Active Substance: PSEUDOEPHEDRINE HYDROCHLORIDE
     Dosage: UNK
     Route: 064
  41. PSEUDOEPHEDRINE HYDROCHLORIDE [Suspect]
     Active Substance: PSEUDOEPHEDRINE HYDROCHLORIDE
     Indication: Foetal exposure during pregnancy
     Route: 064
  42. CETIRIZINE HYDROCHLORIDE [Suspect]
     Active Substance: CETIRIZINE HYDROCHLORIDE
     Indication: Foetal exposure during pregnancy
     Route: 064
  43. SULFASALAZINE [Suspect]
     Active Substance: SULFASALAZINE
     Indication: Foetal exposure during pregnancy
     Route: 064
  44. SULFASALAZINE [Suspect]
     Active Substance: SULFASALAZINE
     Dosage: UNK
     Route: 064
  45. SULFASALAZINE [Suspect]
     Active Substance: SULFASALAZINE
     Indication: Foetal exposure during pregnancy
     Route: 064
  46. TOCILIZUMAB [Suspect]
     Active Substance: TOCILIZUMAB
     Indication: Foetal exposure during pregnancy
     Dosage: UNK
     Route: 064
  47. TOCILIZUMAB [Suspect]
     Active Substance: TOCILIZUMAB
     Dosage: UNK
     Route: 064
  48. TOFACITINIB CITRATE [Suspect]
     Active Substance: TOFACITINIB CITRATE
     Indication: Foetal exposure during pregnancy
     Route: 064
  49. TOFACITINIB CITRATE [Suspect]
     Active Substance: TOFACITINIB CITRATE
     Dosage: UNK
     Route: 064
  50. TOFACITINIB CITRATE [Suspect]
     Active Substance: TOFACITINIB CITRATE
     Dosage: UNK
     Route: 064
  51. TOFACITINIB CITRATE [Suspect]
     Active Substance: TOFACITINIB CITRATE
     Indication: Foetal exposure during pregnancy
     Route: 064
  52. USTEKINUMAB [Suspect]
     Active Substance: USTEKINUMAB
     Indication: Foetal exposure during pregnancy
     Route: 064
  53. USTEKINUMAB [Suspect]
     Active Substance: USTEKINUMAB
     Dosage: UNK
     Route: 064
  54. ACTEMRA [Suspect]
     Active Substance: TOCILIZUMAB
     Indication: Foetal exposure during pregnancy
     Route: 064
  55. PREDNISONE [Suspect]
     Active Substance: PREDNISONE
     Indication: Foetal exposure during pregnancy
     Route: 064
  56. ARAVA [Suspect]
     Active Substance: LEFLUNOMIDE
     Indication: Foetal exposure during pregnancy
     Dosage: 20 MILLIGRAM
     Route: 064
  57. ARAVA [Suspect]
     Active Substance: LEFLUNOMIDE
     Dosage: UNK
     Route: 064
  58. ARAVA [Suspect]
     Active Substance: LEFLUNOMIDE
     Dosage: UNK
     Route: 064
  59. BENADRYL [Suspect]
     Active Substance: DIPHENHYDRAMINE HYDROCHLORIDE
     Indication: Foetal exposure during pregnancy
     Route: 064
  60. CETIRIZINE [Suspect]
     Active Substance: CETIRIZINE HYDROCHLORIDE
     Indication: Foetal exposure during pregnancy
     Route: 064
  61. CETIRIZINE HYDROCHLORIDE AND PSEUDOEPHEDRINE HYDROCHLORIDE [Suspect]
     Active Substance: CETIRIZINE HYDROCHLORIDE\PSEUDOEPHEDRINE HYDROCHLORIDE
     Indication: Foetal exposure during pregnancy
     Route: 064
  62. CIMZIA [Suspect]
     Active Substance: CERTOLIZUMAB PEGOL
     Indication: Foetal exposure during pregnancy
     Dosage: UNK
     Route: 064
  63. CIMZIA [Suspect]
     Active Substance: CERTOLIZUMAB PEGOL
     Dosage: UNK
     Route: 064
  64. CORTISONE (HYDROCORTISONE) [Suspect]
     Active Substance: HYDROCORTISONE
     Indication: Foetal exposure during pregnancy
     Route: 064
  65. CORTISONE ACETATE [Suspect]
     Active Substance: CORTISONE ACETATE
     Indication: Foetal exposure during pregnancy
     Dosage: 25 MILLIGRAM
     Route: 064
  66. CORTISONE ACETATE [Suspect]
     Active Substance: CORTISONE ACETATE
     Dosage: 25 MILLIGRAM
     Route: 064
  67. CORTISONE ACETATE [Suspect]
     Active Substance: CORTISONE ACETATE
     Dosage: UNK
     Route: 064
  68. CORTISONE ACETATE [Suspect]
     Active Substance: CORTISONE ACETATE
     Dosage: UNK
     Route: 064
  69. DESOXIMETASONE [Suspect]
     Active Substance: DESOXIMETASONE
     Indication: Foetal exposure during pregnancy
     Route: 064
  70. DICLOFENAC DIETHYLAMINE [Suspect]
     Active Substance: DICLOFENAC DIETHYLAMINE
     Indication: Foetal exposure during pregnancy
     Route: 064
  71. DICLOFENAC SODIUM [Suspect]
     Active Substance: DICLOFENAC SODIUM
     Indication: Foetal exposure during pregnancy
     Route: 064
  72. DICLOFENAC SODIUM [Suspect]
     Active Substance: DICLOFENAC SODIUM
     Indication: Foetal exposure during pregnancy
     Route: 064
  73. DIPHENHYDRAMINE HYDROCHLORIDE [Suspect]
     Active Substance: DIPHENHYDRAMINE HYDROCHLORIDE
     Indication: Foetal exposure during pregnancy
     Route: 064
  74. ENBREL [Suspect]
     Active Substance: ETANERCEPT
     Indication: Foetal exposure during pregnancy
     Route: 064
  75. FOLIC ACID [Suspect]
     Active Substance: FOLIC ACID
     Indication: Foetal exposure during pregnancy
     Dosage: UNK
     Route: 064
  76. FOLIC ACID [Suspect]
     Active Substance: FOLIC ACID
     Dosage: UNK
     Route: 064
  77. FOSAMAX [Suspect]
     Active Substance: ALENDRONATE SODIUM
     Indication: Foetal exposure during pregnancy
     Route: 064
  78. HUMIRA [Suspect]
     Active Substance: ADALIMUMAB
     Indication: Foetal exposure during pregnancy
     Route: 064
  79. HYDROXYCHLOROQUINE SULFATE [Suspect]
     Active Substance: HYDROXYCHLOROQUINE SULFATE
     Indication: Foetal exposure during pregnancy
     Route: 064
  80. INFLIXIMAB [Suspect]
     Active Substance: INFLIXIMAB
     Indication: Foetal exposure during pregnancy
     Route: 064
  81. ISOCONAZOLE NITRATE [Suspect]
     Active Substance: ISOCONAZOLE NITRATE
     Indication: Foetal exposure during pregnancy
     Route: 064
  82. OTEZLA [Suspect]
     Active Substance: APREMILAST
     Indication: Foetal exposure during pregnancy
     Route: 064
  83. PLAQUENIL [Suspect]
     Active Substance: HYDROXYCHLOROQUINE SULFATE
     Indication: Foetal exposure during pregnancy
     Route: 064
  84. PREDNISONE [Suspect]
     Active Substance: PREDNISONE
     Indication: Foetal exposure during pregnancy
     Dosage: UNK
     Route: 064
  85. PREDNISONE [Suspect]
     Active Substance: PREDNISONE
     Dosage: UNK
     Route: 064
  86. REMICADE [Suspect]
     Active Substance: INFLIXIMAB
     Indication: Foetal exposure during pregnancy
     Route: 064
  87. REMICADE [Suspect]
     Active Substance: INFLIXIMAB
     Indication: Foetal exposure during pregnancy
     Route: 064
  88. SIMPONI [Suspect]
     Active Substance: GOLIMUMAB
     Indication: Foetal exposure during pregnancy
     Route: 064
  89. SOLU-MEDROL [Suspect]
     Active Substance: METHYLPREDNISOLONE SODIUM SUCCINATE
     Indication: Foetal exposure during pregnancy
     Route: 064
  90. STELARA [Suspect]
     Active Substance: USTEKINUMAB
     Indication: Foetal exposure during pregnancy
     Route: 064
  91. SULFASALAZINE [Suspect]
     Active Substance: SULFASALAZINE
     Indication: Foetal exposure during pregnancy
     Route: 064
  92. SULFASALAZINE [Suspect]
     Active Substance: SULFASALAZINE
     Dosage: UNK
     Route: 064
  93. HYDROCORTISONE ACETATE [Suspect]
     Active Substance: HYDROCORTISONE ACETATE
     Indication: Foetal exposure during pregnancy
     Route: 064
  94. PREDNISONE [Suspect]
     Active Substance: PREDNISONE
     Indication: Foetal exposure during pregnancy
     Route: 064
  95. XELJANZ [Suspect]
     Active Substance: TOFACITINIB CITRATE
     Indication: Foetal exposure during pregnancy
     Route: 064
  96. CAFFEINE CITRATE [Concomitant]
     Active Substance: CAFFEINE CITRATE
     Indication: Foetal exposure during pregnancy
     Route: 064
  97. CODEINE [Concomitant]
     Active Substance: CODEINE
     Indication: Foetal exposure during pregnancy
     Route: 064
  98. DICLOFENAC POTASSIUM [Concomitant]
     Active Substance: DICLOFENAC POTASSIUM
     Indication: Foetal exposure during pregnancy
     Dosage: UNK
     Route: 065
  99. DICLOFENAC POTASSIUM [Concomitant]
     Active Substance: DICLOFENAC POTASSIUM
     Dosage: UNK
     Route: 064
  100. IBUPROFEN [Concomitant]
     Active Substance: IBUPROFEN
     Indication: Foetal exposure during pregnancy
     Route: 064
  101. LISINOPRIL [Concomitant]
     Active Substance: LISINOPRIL
     Indication: Foetal exposure during pregnancy
     Route: 064
  102. VITAMIN D3 [Concomitant]
     Active Substance: CHOLECALCIFEROL
     Indication: Foetal exposure during pregnancy
     Route: 064
  103. DICLOFENAC POTASSIUM [Concomitant]
     Active Substance: DICLOFENAC POTASSIUM
     Indication: Foetal exposure during pregnancy
     Route: 064
  104. SULFASALAZINE [Concomitant]
     Active Substance: SULFASALAZINE
     Indication: Foetal exposure during pregnancy
     Dosage: 500 MILLIGRAM
     Route: 064

REACTIONS (2)
  - Death neonatal [Fatal]
  - Exposure during pregnancy [Fatal]
